FAERS Safety Report 10978640 (Version 3)
Quarter: 2015Q2

REPORT INFORMATION
  Report Type: Report from Study
  Country: JP (occurrence: JP)
  Receive Date: 20150402
  Receipt Date: 20150507
  Transmission Date: 20150821
  Serious: Yes (Hospitalization)
  Sender: FDA-Public Use
  Company Number: JP-ABBVIE-15K-087-1367569-00

PATIENT
  Age: 40 Year
  Sex: Male
  Weight: 55.7 kg

DRUGS (11)
  1. HUMIRA [Suspect]
     Active Substance: ADALIMUMAB
     Indication: BEHCET^S SYNDROME
     Route: 058
     Dates: start: 20140110, end: 20140110
  2. HUMIRA [Suspect]
     Active Substance: ADALIMUMAB
     Route: 058
     Dates: start: 20140812, end: 20140812
  3. ELENTAL [Concomitant]
     Active Substance: MINERALS\VITAMINS
     Indication: BEHCET^S SYNDROME
     Dosage: 300 KCAL
     Route: 048
     Dates: start: 20140108, end: 20140109
  4. AZATHIOPRINE. [Concomitant]
     Active Substance: AZATHIOPRINE
     Indication: BEHCET^S SYNDROME
     Route: 048
     Dates: start: 20140207
  5. HUMIRA [Suspect]
     Active Substance: ADALIMUMAB
     Route: 058
     Dates: start: 20140207, end: 20140307
  6. HUMIRA [Suspect]
     Active Substance: ADALIMUMAB
     Route: 058
     Dates: start: 20140825, end: 20140825
  7. HUMIRA [Suspect]
     Active Substance: ADALIMUMAB
     Route: 058
     Dates: start: 20140908
  8. HUMIRA [Suspect]
     Active Substance: ADALIMUMAB
     Route: 058
     Dates: start: 20140124, end: 20140124
  9. ELENTAL [Concomitant]
     Active Substance: MINERALS\VITAMINS
     Dosage: 1800 KCAL
     Route: 048
     Dates: start: 20140116
  10. MESALAZINE [Concomitant]
     Active Substance: MESALAMINE
     Indication: BEHCET^S SYNDROME
     Route: 048
  11. ELENTAL [Concomitant]
     Active Substance: MINERALS\VITAMINS
     Dosage: 600 KCAL
     Route: 048
     Dates: start: 20140110, end: 20140115

REACTIONS (3)
  - Behcet^s syndrome [Unknown]
  - Ileal perforation [Recovered/Resolved]
  - Drug ineffective [Unknown]

NARRATIVE: CASE EVENT DATE: 2014
